FAERS Safety Report 12997029 (Version 1)
Quarter: 2016Q4

REPORT INFORMATION
  Report Type: Report from Study
  Country: JP (occurrence: JP)
  Receive Date: 20161205
  Receipt Date: 20161205
  Transmission Date: 20170207
  Serious: Yes (Other)
  Sender: FDA-Public Use
  Company Number: JP-ACCORD-046194

PATIENT

DRUGS (1)
  1. IRINOTECAN [Suspect]
     Active Substance: IRINOTECAN
     Indication: HEPATOBLASTOMA
     Dosage: PER DAY FROM DAY 1 TO 5, 8 TO 12, EVERY 21 DAYS

REACTIONS (1)
  - Infection reactivation [Recovered/Resolved]
